FAERS Safety Report 9848232 (Version 1)
Quarter: 2014Q1

REPORT INFORMATION
  Report Type: Spontaneous
  Country: US (occurrence: None)
  Receive Date: 20140123
  Receipt Date: 20140123
  Transmission Date: 20141002
  Serious: Yes (Hospitalization)
  Sender: FDA-Public Use
  Company Number: None

PATIENT
  Age: 86 Year
  Sex: Male
  Weight: 104 kg

DRUGS (1)
  1. XARELTO [Suspect]
     Indication: ATRIAL FIBRILLATION
     Dosage: 15 MG, QHS/ BEDTIME, ENTERAL

REACTIONS (1)
  - Rectal haemorrhage [None]
